FAERS Safety Report 9941801 (Version 1)
Quarter: 2014Q1

REPORT INFORMATION
  Report Type: Report from Study
  Country: US (occurrence: US)
  Receive Date: 20140303
  Receipt Date: 20140303
  Transmission Date: 20141002
  Serious: No
  Sender: FDA-Public Use
  Company Number: US-ABBVIE-13P-163-1041591-00

PATIENT
  Age: 24 Year
  Sex: Male
  Weight: 78.54 kg

DRUGS (4)
  1. HUMIRA [Suspect]
     Indication: PUSTULAR PSORIASIS
     Route: 058
     Dates: start: 20130114, end: 20130114
  2. HUMIRA [Suspect]
     Indication: PSORIATIC ARTHROPATHY
  3. PREDNISONE [Concomitant]
     Indication: PRODUCT USED FOR UNKNOWN INDICATION
  4. CLOBETASOL [Concomitant]
     Indication: PSORIASIS

REACTIONS (8)
  - Ear swelling [Recovering/Resolving]
  - Injection site rash [Not Recovered/Not Resolved]
  - Pruritus [Not Recovered/Not Resolved]
  - Swelling face [Recovering/Resolving]
  - Urticaria [Recovering/Resolving]
  - Injection site erythema [Unknown]
  - Injection site reaction [Unknown]
  - Off label use [Unknown]
